FAERS Safety Report 6453561-5 (Version None)
Quarter: 2009Q4

REPORT INFORMATION
  Report Type: 
  Country: None (occurrence: None)
  Receive Date: 20091124
  Receipt Date: 20090513
  Transmission Date: 20100525
  Serious: No
  Sender: FDA-Public Use
  Company Number: US-AMGEN-COG347015

PATIENT
  Sex: Female

DRUGS (3)
  1. ENBREL [Suspect]
     Indication: RHEUMATOID ARTHRITIS
     Route: 058
     Dates: start: 20090210
  2. METHOTREXATE [Concomitant]
  3. CYMBALTA [Concomitant]

REACTIONS (10)
  - DENTAL PLAQUE [None]
  - DRUG ERUPTION [None]
  - GINGIVAL DISORDER [None]
  - GINGIVAL PAIN [None]
  - INJECTION SITE PAIN [None]
  - LIP SWELLING [None]
  - PAIN [None]
  - PERIODONTAL DISEASE [None]
  - PERIVASCULAR DERMATITIS [None]
  - TOOTH DEPOSIT [None]
